FAERS Safety Report 6034560-4 (Version None)
Quarter: 2009Q1

REPORT INFORMATION
  Report Type: 
  Country: None (occurrence: None)
  Receive Date: 20090108
  Receipt Date: 20081223
  Transmission Date: 20090719
  Serious: Yes (Death)
  Sender: FDA-Public Use
  Company Number: 8040801

PATIENT
  Age: 32 Year
  Sex: Male

DRUGS (8)
  1. ACETAMINOPHEN AND HYDROCODONE BITARTRATE [Suspect]
     Dates: start: 20070101, end: 20070101
  2. MARIJUANA [Suspect]
     Dates: end: 20070101
  3. LITHIUM [Suspect]
     Dates: end: 20070101
  4. SERTRALINE [Suspect]
     Dates: end: 20070101
  5. QUETIAPINE FUMARATE [Suspect]
     Dates: end: 20070101
  6. DIPHENHYDRAMINE HCL [Suspect]
     Dates: end: 20070101
  7. METHADONE HCL [Suspect]
     Dates: end: 20070101
  8. CLONAZEPAM [Suspect]
     Dates: end: 20070101

REACTIONS (2)
  - COMPLETED SUICIDE [None]
  - INTENTIONAL DRUG MISUSE [None]
